FAERS Safety Report 19832815 (Version 1)
Quarter: 2021Q3

REPORT INFORMATION
  Report Type: Spontaneous
  Country: US (occurrence: US)
  Receive Date: 20210915
  Receipt Date: 20210915
  Transmission Date: 20211014
  Serious: Yes (Other)
  Sender: FDA-Public Use
  Company Number: US-GLAXOSMITHKLINE-US2021GSK196164

PATIENT
  Sex: Male

DRUGS (4)
  1. ZANTAC [Suspect]
     Active Substance: RANITIDINE HYDROCHLORIDE
     Indication: THROAT CANCER
     Dosage: UNK UNK, QD
     Route: 065
     Dates: start: 199701, end: 200512
  2. RANITIDINE HYDROCHLORIDE. [Suspect]
     Active Substance: RANITIDINE HYDROCHLORIDE
     Indication: THROAT CANCER
     Dosage: UNK UNK, QD
     Route: 065
     Dates: start: 199701, end: 200512
  3. ZANTAC [Suspect]
     Active Substance: RANITIDINE HYDROCHLORIDE
     Indication: THROAT CANCER
     Dosage: UNK, QD
     Route: 065
     Dates: start: 199701, end: 200512
  4. RANITIDINE HYDROCHLORIDE. [Suspect]
     Active Substance: RANITIDINE HYDROCHLORIDE
     Indication: THROAT CANCER
     Dosage: UNK UNK, QD
     Route: 065
     Dates: start: 199701, end: 200512

REACTIONS (1)
  - Oesophageal carcinoma [Unknown]
